FAERS Safety Report 15348711 (Version 5)
Quarter: 2018Q4

REPORT INFORMATION
  Report Type: Report from Study
  Country: CA (occurrence: CA)
  Receive Date: 20180904
  Receipt Date: 20181221
  Transmission Date: 20190204
  Serious: Yes (Other)
  Sender: FDA-Public Use
  Company Number: CA-JNJFOC-20180822861

PATIENT
  Age: 16 Year
  Sex: Male
  Weight: 67.5 kg

DRUGS (4)
  1. STELARA [Suspect]
     Active Substance: USTEKINUMAB
     Indication: CROHN^S DISEASE
     Route: 042
     Dates: start: 20161122, end: 20170322
  2. STELARA [Suspect]
     Active Substance: USTEKINUMAB
     Indication: CROHN^S DISEASE
     Dosage: STRENGTH = 130 MG
     Route: 042
     Dates: start: 20180719
  3. STELARA [Suspect]
     Active Substance: USTEKINUMAB
     Indication: CROHN^S DISEASE
     Route: 042
     Dates: start: 20180824
  4. STELARA [Suspect]
     Active Substance: USTEKINUMAB
     Indication: CROHN^S DISEASE
     Route: 042

REACTIONS (11)
  - Clostridium difficile infection [Unknown]
  - Haematochezia [Recovered/Resolved]
  - Fistula discharge [Unknown]
  - Mucous stools [Recovered/Resolved]
  - Abscess [Not Recovered/Not Resolved]
  - General physical health deterioration [Recovered/Resolved]
  - Off label use [Unknown]
  - Product use issue [Unknown]
  - Faeces discoloured [Not Recovered/Not Resolved]
  - Drug ineffective [Unknown]
  - Diarrhoea [Not Recovered/Not Resolved]

NARRATIVE: CASE EVENT DATE: 20161122
